FAERS Safety Report 5162777-X (Version None)
Quarter: 2006Q4

REPORT INFORMATION
  Report Type: 
  Country: None (occurrence: None)
  Receive Date: 20061201
  Receipt Date: 20061117
  Transmission Date: 20070319
  Serious: Yes (Other)
  Sender: FDA-Public Use
  Company Number: MX-ELI_LILLY_AND_COMPANY-MX200611003524

PATIENT
  Age: 11 Year
  Sex: Male
  Weight: 35 kg

DRUGS (2)
  1. STRATTERA [Suspect]
     Dosage: 10 MG, UNKNOWN
     Route: 048
     Dates: start: 20060601
  2. STRATTERA [Suspect]
     Dosage: 60 MG, UNK
     Route: 048

REACTIONS (4)
  - DECREASED APPETITE [None]
  - DEPRESSION [None]
  - FATIGUE [None]
  - SUICIDE ATTEMPT [None]
